FAERS Safety Report 5916089-4 (Version None)
Quarter: 2008Q4

REPORT INFORMATION
  Report Type: 
  Country: None (occurrence: None)
  Receive Date: 20081013
  Receipt Date: 20081001
  Transmission Date: 20090506
  Serious: Yes (Hospitalization, Other)
  Sender: FDA-Public Use
  Company Number: US-CELGENEUS-163-21880-07120066

PATIENT
  Sex: Male
  Weight: 128.5 kg

DRUGS (2)
  1. REVLIMID [Suspect]
     Indication: MULTIPLE MYELOMA
     Route: 048
     Dates: start: 20071015
  2. CCI-779 [Suspect]
     Indication: MULTIPLE MYELOMA
     Dosage: 15MG OVER 30 MIN
     Route: 051
     Dates: start: 20071015

REACTIONS (3)
  - DIARRHOEA [None]
  - HYPOPHOSPHATAEMIA [None]
  - PNEUMONIA [None]
